FAERS Safety Report 16101468 (Version 1)
Quarter: 2019Q1

REPORT INFORMATION
  Report Type: Spontaneous
  Country: US (occurrence: US)
  Receive Date: 20190321
  Receipt Date: 20190321
  Transmission Date: 20190418
  Serious: No
  Sender: FDA-Public Use
  Company Number: US-ADAMAS PHARMA, LLC-2018ADA02965

PATIENT
  Sex: Female
  Weight: 66.21 kg

DRUGS (16)
  1. SYNTHROID [Concomitant]
     Active Substance: LEVOTHYROXINE SODIUM
     Dosage: 75 ?G, 1X/DAY
     Route: 048
  2. MELATONIN [Concomitant]
     Active Substance: MELATONIN
     Dosage: 3 MG, 1X/DAY AT BEDTIME
     Route: 048
  3. MIRABEGRON ER [Concomitant]
     Active Substance: MIRABEGRON
     Dosage: 50 MG, 1X/DAY
     Route: 048
  4. GOCOVRI [Suspect]
     Active Substance: AMANTADINE
     Indication: DYSKINESIA
     Dosage: UNK
     Route: 048
     Dates: start: 20171221, end: 20181001
  5. CARBIDOPA-LEVODOPA CR [Concomitant]
     Dosage: 50 MG, 1X/DAY AT BEDTIME
     Route: 048
  6. GOCOVRI [Suspect]
     Active Substance: AMANTADINE
     Dosage: UNK
     Route: 048
     Dates: start: 20171221, end: 20181001
  7. NEUPRO [Concomitant]
     Active Substance: ROTIGOTINE
     Dosage: 6 MG, 1X/DAY
     Route: 062
  8. BILATERAL GPI DEEP BRAIN STIMULATION [Concomitant]
     Dosage: AMPLITUDE INCREASED BILATERALLY
     Dates: start: 20180926
  9. SINEMET [Concomitant]
     Active Substance: CARBIDOPA\LEVODOPA
     Dosage: 50 MG, 1X/DAY FOR THE FIRST DOSE
     Route: 048
  10. AZILECT [Concomitant]
     Active Substance: RASAGILINE MESYLATE
     Dosage: 1 MG, 1X/DAY
     Route: 048
  11. NASACORT AQ NA [Concomitant]
     Dosage: UNK, AS NEEDED
     Route: 045
  12. NUVIGIL [Concomitant]
     Active Substance: ARMODAFINIL
     Dosage: 150 MG, 1X/DAY EVERY MORNING
     Route: 048
  13. COMTAN [Concomitant]
     Active Substance: ENTACAPONE
     Dosage: 200 MG, 4-5X/DAY
     Route: 048
  14. SINEMET [Concomitant]
     Active Substance: CARBIDOPA\LEVODOPA
     Dosage: 25G, 9X/DAY EVERY 2 HOURS WHILE AWAKE AFTER THE FIRST DOSE OF 2 TABS
     Route: 048
  15. CLARITIN [Concomitant]
     Active Substance: LORATADINE
     Dosage: 10 MG, DAILY AS NEEDED
     Route: 048
  16. ESTRACE [Concomitant]
     Active Substance: ESTRADIOL
     Dosage: 1 G, 3X/WEEK
     Route: 067

REACTIONS (3)
  - Insomnia [Recovering/Resolving]
  - Lethargy [Not Recovered/Not Resolved]
  - Bradykinesia [Not Recovered/Not Resolved]

NARRATIVE: CASE EVENT DATE: 2018
